FAERS Safety Report 14694850 (Version 3)
Quarter: 2018Q2

REPORT INFORMATION
  Report Type: Spontaneous
  Country: JP (occurrence: JP)
  Receive Date: 20180329
  Receipt Date: 20180530
  Transmission Date: 20180711
  Serious: Yes (Death, Life-Threatening, Other)
  Sender: FDA-Public Use
  Company Number: JP-ELI_LILLY_AND_COMPANY-JP201803011857

PATIENT
  Age: 81 Year
  Sex: Male
  Weight: 53 kg

DRUGS (10)
  1. TRAMCET [Concomitant]
     Active Substance: ACETAMINOPHEN\TRAMADOL
     Dosage: 1 DF, BID
     Route: 048
     Dates: start: 20180309, end: 201803
  2. PENTAZOCINE [Concomitant]
     Active Substance: PENTAZOCINE
     Indication: PAIN
     Dosage: 1 DF, UNK
     Route: 030
     Dates: start: 20180318, end: 20180318
  3. DUROTEP [Concomitant]
     Active Substance: FENTANYL
     Indication: PAIN
     Dosage: UNK
     Route: 062
     Dates: start: 20180319, end: 20180319
  4. FORTEO [Suspect]
     Active Substance: TERIPARATIDE
     Indication: OSTEOPOROSIS
     Dosage: 20 UG, DAILY
     Route: 058
     Dates: start: 20180316, end: 20180319
  5. PLETAL [Concomitant]
     Active Substance: CILOSTAZOL
     Dosage: 100 MG, BID
     Route: 048
     Dates: start: 20150827, end: 20180320
  6. REMITCH [Concomitant]
     Active Substance: NALFURAFINE HYDROCHLORIDE
     Dosage: 2.5 MG, DAILY
     Route: 048
     Dates: end: 20180319
  7. ARTIST [Concomitant]
     Active Substance: CARVEDILOL
     Dosage: 10 MG, DAILY
     Route: 048
     Dates: start: 201501, end: 20180319
  8. AMLODIN [Concomitant]
     Active Substance: AMLODIPINE BESYLATE
     Dosage: 5 MG, BID
     Route: 048
     Dates: start: 20160215, end: 20180319
  9. BISONO [Concomitant]
     Active Substance: BISOPROLOL
     Dosage: UNK
     Route: 062
     Dates: start: 201501, end: 20180320
  10. AMLODIN [Concomitant]
     Active Substance: AMLODIPINE BESYLATE
     Dosage: 5 MG, DAILY
     Route: 048
     Dates: start: 20160215, end: 20180319

REACTIONS (11)
  - Circulatory collapse [Fatal]
  - Weight decreased [Unknown]
  - Respiratory failure [Fatal]
  - Depressed level of consciousness [Unknown]
  - Staphylococcus test positive [Unknown]
  - C-reactive protein increased [Unknown]
  - Hypoproteinaemia [Unknown]
  - Loss of consciousness [Recovered/Resolved]
  - Pyrexia [Unknown]
  - Hypophagia [Unknown]
  - Anaemia [Unknown]

NARRATIVE: CASE EVENT DATE: 20180317
